FAERS Safety Report 7808560-5 (Version None)
Quarter: 2011Q4

REPORT INFORMATION
  Report Type: 
  Country: None (occurrence: None)
  Receive Date: 20111012
  Receipt Date: 20111003
  Transmission Date: 20120403
  Serious: Yes (Hospitalization)
  Sender: FDA-Public Use
  Company Number: US-BAYER-2011-054841

PATIENT
  Age: 66 Year
  Sex: Male

DRUGS (10)
  1. NPH INSULIN [Concomitant]
     Indication: DIABETES MELLITUS
  2. SPIRONOLACTONE [Concomitant]
  3. OMEPRAZOLE [Concomitant]
  4. TRAMADOL HCL [Concomitant]
  5. NEXAVAR [Suspect]
     Indication: HEPATIC NEOPLASM MALIGNANT
     Dosage: 400 MG, BID
     Route: 048
     Dates: start: 20110121
  6. LACTULOSE [Concomitant]
  7. METOPROLOL TARTRATE [Concomitant]
  8. FUROSEMIDE [Concomitant]
  9. MULTI-VITAMIN [Concomitant]
  10. RIFAXIMIN [Concomitant]

REACTIONS (3)
  - ASCITES [None]
  - TRAUMATIC FRACTURE [None]
  - FALL [None]
